FAERS Safety Report 8779604 (Version 3)
Quarter: 2015Q2

REPORT INFORMATION
  Report Type: Report from Study
  Country: US (occurrence: US)
  Receive Date: 20120912
  Receipt Date: 20150403
  Transmission Date: 20150821
  Serious: Yes (Death, Other)
  Sender: FDA-Public Use
  Company Number: US-ROCHE-1099303

PATIENT
  Age: 60 Year
  Sex: Male

DRUGS (3)
  1. ACTIVASE [Suspect]
     Active Substance: ALTEPLASE
     Dosage: 50 MG OVER 1 HOUR
     Route: 042
     Dates: start: 19920417
  2. ACTIVASE [Suspect]
     Active Substance: ALTEPLASE
     Indication: ACUTE MYOCARDIAL INFARCTION
     Dosage: IVP OVER 4 MIN
     Route: 042
     Dates: start: 19920417
  3. ACTIVASE [Suspect]
     Active Substance: ALTEPLASE
     Dosage: IVPB OVER 30 MIN
     Route: 042
     Dates: start: 19920417

REACTIONS (3)
  - Supraventricular extrasystoles [Unknown]
  - Death [Fatal]
  - Chest pain [Unknown]

NARRATIVE: CASE EVENT DATE: 19920417
